FAERS Safety Report 5878243-X (Version None)
Quarter: 2008Q3

REPORT INFORMATION
  Report Type: 
  Country: None (occurrence: None)
  Receive Date: 20080911
  Receipt Date: 20080722
  Transmission Date: 20090109
  Serious: Yes (Hospitalization, Other)
  Sender: FDA-Public Use
  Company Number: US-PURDUE-USA_2008_0034547

PATIENT
  Age: 48 Year
  Sex: Female
  Weight: 86 kg

DRUGS (4)
  1. OXYCONTIN [Suspect]
     Indication: PAIN
     Dosage: 40 MG, TID
     Route: 048
     Dates: start: 19990107, end: 20030320
  2. PERCOCET-5 [Concomitant]
     Indication: DRUG USE FOR UNKNOWN INDICATION
  3. ESTROGEN NOS [Concomitant]
     Indication: DRUG USE FOR UNKNOWN INDICATION
  4. PREVACID [Concomitant]

REACTIONS (11)
  - ANXIETY [None]
  - BLOOD DISORDER [None]
  - CONSTIPATION [None]
  - DRUG DETOXIFICATION [None]
  - FATIGUE [None]
  - HOT FLUSH [None]
  - IRRITABILITY [None]
  - LIBIDO DECREASED [None]
  - MALAISE [None]
  - PAIN [None]
  - RENAL IMPAIRMENT [None]
